FAERS Safety Report 10370168 (Version 1)
Quarter: 2014Q3

REPORT INFORMATION
  Report Type: Spontaneous
  Country: US (occurrence: None)
  Receive Date: 20140806
  Receipt Date: 20140806
  Transmission Date: 20150326
  Serious: Yes (Hospitalization)
  Sender: FDA-Public Use
  Company Number: None

PATIENT
  Age: 72 Year
  Sex: Male
  Weight: 102 kg

DRUGS (12)
  1. NEUOPOGEN [Concomitant]
  2. NEXIUM [Concomitant]
     Active Substance: ESOMEPRAZOLE MAGNESIUM
  3. PROVENTIL [Concomitant]
     Active Substance: ALBUTEROL
  4. DOXORUBICIN HYDROCHLORIDE. [Suspect]
     Active Substance: DOXORUBICIN HYDROCHLORIDE
  5. ETOPOSIDE (VP 16) [Suspect]
     Active Substance: ETOPOSIDE
  6. RITUXIMAB (MOAB C3B8 ANTI DC20, CHIMERIC) [Suspect]
     Active Substance: RITUXIMAB
  7. VINCRISTINE SULFATE. [Suspect]
     Active Substance: VINCRISTINE SULFATE
  8. ALLPURINOL [Concomitant]
  9. CYCLOPHOSPHAMIDE. [Suspect]
     Active Substance: CYCLOPHOSPHAMIDE
  10. METHOTREXATE [Suspect]
     Active Substance: METHOTREXATE
  11. CARDIZEM [Concomitant]
     Active Substance: DILTIAZEM HYDROCHLORIDE
  12. LOPRESSOR [Concomitant]
     Active Substance: METOPROLOL TARTRATE

REACTIONS (7)
  - Fluid overload [None]
  - Effusion [None]
  - Respiratory failure [None]
  - Haemoptysis [None]
  - Dialysis [None]
  - Renal failure acute [None]
  - Thrombocytopenia [None]

NARRATIVE: CASE EVENT DATE: 20140801
